FAERS Safety Report 9085430 (Version 2)
Quarter: 2013Q4

REPORT INFORMATION
  Report Type: Spontaneous
  Country: GB (occurrence: GB)
  Receive Date: 20130131
  Receipt Date: 20131004
  Transmission Date: 20140711
  Serious: Yes (Life-Threatening, Hospitalization, Other)
  Sender: FDA-Public Use
  Company Number: GB-B.I. PHARMACEUTICALS,INC./RIDGEFIELD-2013-UK-00103UK

PATIENT
  Age: 62 Year
  Sex: Male
  Weight: 95 kg

DRUGS (5)
  1. DABIGATRAN [Suspect]
     Indication: ATRIAL FIBRILLATION
     Dosage: 300 MG
     Route: 048
     Dates: start: 20121011, end: 20121211
  2. DABIGATRAN [Suspect]
     Indication: CEREBROVASCULAR ACCIDENT PROPHYLAXIS
  3. BISOPROLOL FUMARATE [Concomitant]
  4. FLECAINIDE [Concomitant]
  5. VERAPAMIL [Concomitant]

REACTIONS (3)
  - Acute myocardial infarction [Recovered/Resolved with Sequelae]
  - Left ventricular failure [Recovered/Resolved]
  - Coronary artery thrombosis [Recovered/Resolved]
